FAERS Safety Report 21378801 (Version 3)
Quarter: 2022Q4

REPORT INFORMATION
  Report Type: Spontaneous
  Country: MX (occurrence: MX)
  Receive Date: 20220927
  Receipt Date: 20221012
  Transmission Date: 20230113
  Serious: Yes (Hospitalization, Other)
  Sender: FDA-Public Use
  Company Number: MX-CELLTRION INC.-2022MX015366

PATIENT

DRUGS (4)
  1. INFLIXIMAB [Suspect]
     Active Substance: INFLIXIMAB
     Indication: Spondylitis
     Dosage: 200 MG ONE APPLICATION (200MG INFLIXIMAB/ 250ML OF SALINE SOLUTION) IV APPLICATION W/PERIOD OF 2HRS
     Route: 042
     Dates: start: 20220812
  2. SODIUM CHLORIDE [Suspect]
     Active Substance: SODIUM CHLORIDE
     Indication: Spondylitis
     Dosage: 250ML SALINE SOLUTION IV APPLICATION W/PERIOD OF 2HRS 30MIN
     Route: 042
     Dates: start: 20220812
  3. AVAPENA [Concomitant]
  4. HYDROCORTISONE [Concomitant]
     Active Substance: HYDROCORTISONE

REACTIONS (2)
  - Stevens-Johnson syndrome [Not Recovered/Not Resolved]
  - Underdose [Unknown]

NARRATIVE: CASE EVENT DATE: 20220919
